FAERS Safety Report 7743320-5 (Version None)
Quarter: 2011Q3

REPORT INFORMATION
  Report Type: 
  Country: None (occurrence: None)
  Receive Date: 20110909
  Receipt Date: 20110909
  Transmission Date: 20111222
  Serious: Yes (Death)
  Sender: FDA-Public Use
  Company Number: None

PATIENT
  Age: 54 Year
  Sex: Female
  Weight: 61.4 kg

DRUGS (1)
  1. TARCEVA [Suspect]
     Dosage: 150 QD PO PATIENT TOOK 4 DOSES
     Route: 048

REACTIONS (4)
  - VOMITING [None]
  - INCOHERENT [None]
  - SYNCOPE [None]
  - CONVULSION [None]
